FAERS Safety Report 4617983-7 (Version None)
Quarter: 2005Q1

REPORT INFORMATION
  Report Type: 
  Country: None (occurrence: None)
  Receive Date: 20050322
  Receipt Date: 20050307
  Transmission Date: 20050727
  Serious: Yes (Hospitalization)
  Sender: FDA-Public Use
  Company Number: 2005CG00500

PATIENT
  Age: 81 Year
  Sex: Male
  Weight: 70 kg

DRUGS (7)
  1. ATACAND [Suspect]
     Dosage: 8 MG DAILY PO
     Route: 048
  2. NOPRON [Suspect]
     Dosage: 2 DF DAILY PO
     Route: 048
     Dates: end: 20041123
  3. VASTAREL ^SERVIER^ [Suspect]
     Dates: end: 20041123
  4. ENOXOR [Suspect]
     Dates: end: 20041123
  5. NOCTAMID [Suspect]
     Dosage: 1 DF DAILY PO
     Route: 048
     Dates: end: 20041122
  6. EFFEXOR [Suspect]
     Dosage: 37.5 MG TID PO
     Route: 048
     Dates: end: 20041122
  7. LANTUS [Concomitant]

REACTIONS (23)
  - AGITATION [None]
  - APHASIA [None]
  - BLOOD CREATININE INCREASED [None]
  - BLOOD GLUCOSE INCREASED [None]
  - BLOOD PRESSURE INCREASED [None]
  - BLOOD SODIUM DECREASED [None]
  - BLOOD UREA INCREASED [None]
  - BRAIN CONTUSION [None]
  - BRAIN HERNIATION [None]
  - CONFUSIONAL STATE [None]
  - DISORIENTATION [None]
  - ECCHYMOSIS [None]
  - FALL [None]
  - HAEMOGLOBIN DECREASED [None]
  - HEMIPARESIS [None]
  - HEMIPLEGIA [None]
  - LEUKOCYTOSIS [None]
  - LUNG DISORDER [None]
  - MALAISE [None]
  - SUBDURAL EFFUSION [None]
  - SUBDURAL HAEMATOMA [None]
  - WHITE BLOOD CELL COUNT INCREASED [None]
  - WOUND [None]
